FAERS Safety Report 24620251 (Version 2)
Quarter: 2025Q1

REPORT INFORMATION
  Report Type: Spontaneous
  Country: US (occurrence: US)
  Receive Date: 20241114
  Receipt Date: 20250106
  Transmission Date: 20250408
  Serious: Yes (Other)
  Sender: PFIZER
  Company Number: US-PFIZER INC-PV202400146958

PATIENT
  Age: 63 Year
  Sex: Female
  Weight: 58.503 kg

DRUGS (10)
  1. TUKYSA [Suspect]
     Active Substance: TUCATINIB
     Indication: Breast cancer metastatic
     Dosage: 2TABS BID
     Route: 048
     Dates: start: 20240628, end: 20240807
  2. TUKYSA [Suspect]
     Active Substance: TUCATINIB
     Dosage: 150 MG, 1X/DAY
     Route: 048
     Dates: start: 20241009
  3. TUKYSA [Suspect]
     Active Substance: TUCATINIB
     Route: 048
  4. OGIVRI [Concomitant]
     Active Substance: TRASTUZUMAB-DKST
     Dates: start: 20240627
  5. OGIVRI [Concomitant]
     Active Substance: TRASTUZUMAB-DKST
     Dosage: 6 MG/KG, EVERY 3 WEEKS
  6. FLUOROURACIL [Concomitant]
     Active Substance: FLUOROURACIL
     Dosage: 600 MG/M2, EVERY 3 WEEKS
     Dates: start: 20240627
  7. LEUCOVORIN [Concomitant]
     Active Substance: LEUCOVORIN\LEUCOVORIN CALCIUM
     Dosage: 400 MG/M2, EVERY 3 WEEKS
  8. VALACYCLOVIR [Concomitant]
     Active Substance: VALACYCLOVIR HYDROCHLORIDE
     Dosage: 1000 MG, 3X/DAY
     Dates: start: 20240627, end: 20240707
  9. ALOXI [Concomitant]
     Active Substance: PALONOSETRON HYDROCHLORIDE
     Route: 042
  10. APAP [Concomitant]
     Active Substance: ACETAMINOPHEN
     Indication: Pain

REACTIONS (3)
  - Transaminases increased [Recovered/Resolved]
  - Liver function test increased [Unknown]
  - Off label use [Unknown]

NARRATIVE: CASE EVENT DATE: 20240806
